FAERS Safety Report 4572537-6 (Version None)
Quarter: 2005Q1

REPORT INFORMATION
  Report Type: 
  Country: None (occurrence: None)
  Receive Date: 20050207
  Receipt Date: 20050201
  Transmission Date: 20050727
  Serious: Yes (Death, Life-Threatening, Hospitalization, Disabling)
  Sender: FDA-Public Use
  Company Number: US-MERCK-0502USA00161

PATIENT
  Age: 66 Year
  Sex: Female

DRUGS (1)
  1. VIOXX [Suspect]
     Indication: ARTHRITIS
     Route: 048
     Dates: start: 19991101, end: 20010706

REACTIONS (3)
  - CARDIAC FAILURE [None]
  - MYOCARDIAL INFARCTION [None]
  - PAIN [None]
